FAERS Safety Report 24774707 (Version 4)
Quarter: 2025Q3

REPORT INFORMATION
  Report Type: Spontaneous
  Country: CA (occurrence: CA)
  Receive Date: 20241226
  Receipt Date: 20250813
  Transmission Date: 20251020
  Serious: Yes (Other)
  Sender: INTERCEPT PHARMACEUTICALS
  Company Number: CA-ADVANZ PHARMA-202411009064

PATIENT
  Age: 64 Year
  Sex: Female

DRUGS (32)
  1. OCALIVA [Suspect]
     Active Substance: OBETICHOLIC ACID
     Indication: Primary biliary cholangitis
     Route: 048
     Dates: start: 20241028
  2. URSODIOL [Concomitant]
     Active Substance: URSODIOL
     Dates: start: 202308
  3. BACLOFEN [Concomitant]
     Active Substance: BACLOFEN
  4. BACLOFEN [Concomitant]
     Active Substance: BACLOFEN
  5. CLONAZEPAM [Concomitant]
     Active Substance: CLONAZEPAM
  6. BOTOX [Concomitant]
     Active Substance: ONABOTULINUMTOXINA
  7. BOTOX [Concomitant]
     Active Substance: ONABOTULINUMTOXINA
  8. NIFEDIPINE [Concomitant]
     Active Substance: NIFEDIPINE
  9. NIFEDIPINE [Concomitant]
     Active Substance: NIFEDIPINE
  10. NIFEDIPINE [Concomitant]
     Active Substance: NIFEDIPINE
  11. NIFEDIPINE [Concomitant]
     Active Substance: NIFEDIPINE
  12. NIFEDIPINE [Concomitant]
     Active Substance: NIFEDIPINE
  13. NIFEDIPINE [Concomitant]
     Active Substance: NIFEDIPINE
  14. DEXILANT [Concomitant]
     Active Substance: DEXLANSOPRAZOLE
     Indication: Dyspepsia
  15. DEXILANT [Concomitant]
     Active Substance: DEXLANSOPRAZOLE
     Indication: Gastrooesophageal reflux disease
  16. RESTASIS [Concomitant]
     Active Substance: CYCLOSPORINE
  17. VITAMINS [Concomitant]
     Active Substance: VITAMINS
  18. CALCIUM\VITAMIN D [Concomitant]
     Active Substance: CALCIUM\VITAMIN D
  19. CALCIUM\VITAMIN D [Concomitant]
     Active Substance: CALCIUM\VITAMIN D
  20. CALCIUM\VITAMIN D [Concomitant]
     Active Substance: CALCIUM\VITAMIN D
  21. CALCIUM\VITAMIN D [Concomitant]
     Active Substance: CALCIUM\VITAMIN D
  22. CALCIUM\VITAMIN D [Concomitant]
     Active Substance: CALCIUM\VITAMIN D
  23. CALCIUM\VITAMIN D [Concomitant]
     Active Substance: CALCIUM\VITAMIN D
  24. TORADOL [Concomitant]
     Active Substance: KETOROLAC TROMETHAMINE
     Indication: Migraine
  25. TORADOL [Concomitant]
     Active Substance: KETOROLAC TROMETHAMINE
  26. TORADOL [Concomitant]
     Active Substance: KETOROLAC TROMETHAMINE
  27. TORADOL [Concomitant]
     Active Substance: KETOROLAC TROMETHAMINE
  28. TORADOL [Concomitant]
     Active Substance: KETOROLAC TROMETHAMINE
  29. TORADOL [Concomitant]
     Active Substance: KETOROLAC TROMETHAMINE
  30. LORAZEPAM [Concomitant]
     Active Substance: LORAZEPAM
     Indication: Specialist consultation
  31. LORAZEPAM [Concomitant]
     Active Substance: LORAZEPAM
  32. PINAVERIUM BROMIDE [Concomitant]
     Active Substance: PINAVERIUM BROMIDE
     Indication: Irritable bowel syndrome

REACTIONS (4)
  - Gastrooesophageal sphincter insufficiency [Unknown]
  - Tongue discomfort [Unknown]
  - Dyspepsia [Recovering/Resolving]
  - Decubitus ulcer [Unknown]
